FAERS Safety Report 17676253 (Version 9)
Quarter: 2022Q3

REPORT INFORMATION
  Report Type: Report from Study
  Country: AR (occurrence: AR)
  Receive Date: 20200416
  Receipt Date: 20220913
  Transmission Date: 20221027
  Serious: Yes (Hospitalization)
  Sender: FDA-Public Use
  Company Number: AR-PFIZER INC-2020156271

PATIENT
  Age: 64 Year
  Sex: Male
  Weight: 72 kg

DRUGS (3)
  1. TALAZOPARIB [Suspect]
     Active Substance: TALAZOPARIB
     Indication: Prostate cancer metastatic
     Dosage: UNK, DAILY; FIRST LINE MCRPC
     Route: 048
     Dates: start: 20200227, end: 20200410
  2. ENZALUTAMIDE [Suspect]
     Active Substance: ENZALUTAMIDE
     Indication: Prostate cancer metastatic
     Dosage: 160 MG, DAILY; FIRST LINE MCRPC
     Route: 048
     Dates: start: 20200227, end: 20200410
  3. LEUPROLIDE ACETATE [Concomitant]
     Active Substance: LEUPROLIDE ACETATE
     Indication: Prostate cancer metastatic
     Dosage: 7.5 MG, EVERY 30 DAY (Q30D)
     Route: 042
     Dates: start: 201806

REACTIONS (2)
  - Blood bilirubin increased [Recovered/Resolved]
  - Meningitis [Recovered/Resolved]

NARRATIVE: CASE EVENT DATE: 20200413
